FAERS Safety Report 9729510 (Version 2)
Quarter: 2015Q3

REPORT INFORMATION
  Report Type: Spontaneous
  Country: US (occurrence: US)
  Receive Date: 20131204
  Receipt Date: 20150804
  Transmission Date: 20151125
  Serious: No
  Sender: FDA-Public Use
  Company Number: US-GILEAD-2009-0022047

PATIENT
  Age: 58 Year
  Sex: Male

DRUGS (12)
  1. REVATIO [Concomitant]
     Active Substance: SILDENAFIL CITRATE
  2. CELEXA [Concomitant]
     Active Substance: CITALOPRAM HYDROBROMIDE
  3. PEPCID [Concomitant]
     Active Substance: FAMOTIDINE
  4. LASIX [Concomitant]
     Active Substance: FUROSEMIDE
  5. TYLENOL WITH CODEINE [Concomitant]
     Active Substance: ACETAMINOPHEN\CODEINE PHOSPHATE
  6. XANAX [Concomitant]
     Active Substance: ALPRAZOLAM
  7. COUMADIN [Concomitant]
     Active Substance: WARFARIN SODIUM
  8. NASAREL [Concomitant]
     Active Substance: FLUNISOLIDE
  9. TESSALON [Concomitant]
     Active Substance: BENZONATATE
  10. POTASSIUM CHLORIDE. [Concomitant]
     Active Substance: POTASSIUM CHLORIDE
  11. LETAIRIS [Suspect]
     Active Substance: AMBRISENTAN
     Indication: PULMONARY ARTERIAL HYPERTENSION
     Route: 048
     Dates: start: 20081128
  12. WELLBUTRIN [Concomitant]
     Active Substance: BUPROPION HYDROCHLORIDE

REACTIONS (2)
  - Nasal congestion [Unknown]
  - Ear discomfort [Unknown]
